FAERS Safety Report 9346442 (Version 1)
Quarter: 2013Q2

REPORT INFORMATION
  Report Type: Spontaneous
  Country: IR (occurrence: IR)
  Receive Date: 20130613
  Receipt Date: 20130613
  Transmission Date: 20140414
  Serious: Yes (Other)
  Sender: FDA-Public Use
  Company Number: IR-009507513-1306IRN005535

PATIENT
  Age: 8 Year
  Sex: Male

DRUGS (5)
  1. POSACONAZOLE [Suspect]
     Indication: ASPERGILLUS INFECTION
     Dosage: UNK
     Route: 048
  2. VINCRISTINE SULFATE [Suspect]
     Indication: T-CELL TYPE ACUTE LEUKAEMIA
     Dosage: 1.5 MG/M2, UNK
  3. DOXORUBICIN [Concomitant]
     Indication: T-CELL TYPE ACUTE LEUKAEMIA
     Dosage: 30 MG/M2, UNK
  4. MERCAPTOPURINE [Concomitant]
     Indication: T-CELL TYPE ACUTE LEUKAEMIA
  5. PREDNISONE [Concomitant]

REACTIONS (6)
  - Pancreatitis [Recovering/Resolving]
  - Pain in jaw [Recovering/Resolving]
  - Toxicity to various agents [Recovering/Resolving]
  - Drug interaction [Recovering/Resolving]
  - Constipation [Recovering/Resolving]
  - Abdominal pain [Recovering/Resolving]
